FAERS Safety Report 10622088 (Version 1)
Quarter: 2014Q4

REPORT INFORMATION
  Report Type: Spontaneous
  Country: US (occurrence: None)
  Receive Date: 20141201
  Receipt Date: 20141201
  Transmission Date: 20150529
  Serious: Yes (Disabling)
  Sender: FDA-Public Use
  Company Number: None

PATIENT
  Age: 46 Year
  Sex: Female
  Weight: 79.38 kg

DRUGS (1)
  1. HUMIRA [Suspect]
     Active Substance: ADALIMUMAB
     Indication: HIDRADENITIS
     Dosage: 40 MG EVERY 2 WEEK GIVEN INTO/UNDER THE SKIN
     Dates: start: 20140101, end: 20140901

REACTIONS (2)
  - Multiple sclerosis [None]
  - Optic neuritis [None]

NARRATIVE: CASE EVENT DATE: 20141112
